FAERS Safety Report 11878332 (Version 1)
Quarter: 2015Q4

REPORT INFORMATION
  Report Type: Spontaneous
  Country: US (occurrence: None)
  Receive Date: 20151229
  Receipt Date: 20151229
  Transmission Date: 20160305
  Serious: Yes (Hospitalization)
  Sender: FDA-Public Use
  Company Number: None

PATIENT
  Age: 81 Year
  Sex: Female

DRUGS (13)
  1. LEVOTHYROXINE SODIUM. [Concomitant]
     Active Substance: LEVOTHYROXINE SODIUM
  2. OMEGA-3 FATTY ACIDS [Concomitant]
     Active Substance: OMEGA-3 FATTY ACIDS
  3. OXYCODONE [Concomitant]
     Active Substance: OXYCODONE
  4. SENNOSIDES. [Concomitant]
     Active Substance: SENNOSIDES
  5. ALENDRONATE SODIUM. [Concomitant]
     Active Substance: ALENDRONATE SODIUM
  6. IC TRAMADOL HCL 50 MG TABLET CVS PHARMACY #0278 [Suspect]
     Active Substance: TRAMADOL HYDROCHLORIDE
     Indication: PAIN
     Dosage: 10/25/15 EVENING HAD 1 MORE TABLET IN HOSPITAL 3 DAYS LATER
     Route: 048
     Dates: start: 20151022
  7. DOCUSATE SODIUM. [Concomitant]
     Active Substance: DOCUSATE SODIUM
  8. POLYVINYL ALCOHOL/PROVIDONE/;PF [Concomitant]
  9. LIDOCAINE. [Concomitant]
     Active Substance: LIDOCAINE
  10. PRAVASTATIN SODIUM. [Concomitant]
     Active Substance: PRAVASTATIN SODIUM
  11. LISINOPRIL. [Concomitant]
     Active Substance: LISINOPRIL
  12. ASPIRIN. [Concomitant]
     Active Substance: ASPIRIN
  13. DICLOFENAC SODIUM. [Concomitant]
     Active Substance: DICLOFENAC SODIUM

REACTIONS (7)
  - Vertigo [None]
  - Vomiting [None]
  - Haemorrhage [None]
  - Head injury [None]
  - Spinal fracture [None]
  - Fall [None]
  - Wound [None]

NARRATIVE: CASE EVENT DATE: 20151023
